FAERS Safety Report 14432620 (Version 3)
Quarter: 2018Q4

REPORT INFORMATION
  Report Type: Report from Study
  Country: US (occurrence: US)
  Receive Date: 20180124
  Receipt Date: 20181015
  Transmission Date: 20190204
  Serious: Yes (Other)
  Sender: FDA-Public Use
  Company Number: PHEH2018US002870

PATIENT
  Sex: Female

DRUGS (1)
  1. GILENYA [Suspect]
     Active Substance: FINGOLIMOD HYDROCHLORIDE
     Indication: MULTIPLE SCLEROSIS
     Dosage: 0.5 MG, QD
     Route: 048
     Dates: start: 2015

REACTIONS (7)
  - Multiple sclerosis relapse [Unknown]
  - Fatigue [Unknown]
  - Back pain [Unknown]
  - Balance disorder [Unknown]
  - Decreased interest [Unknown]
  - Fall [Unknown]
  - Syncope [Unknown]

NARRATIVE: CASE EVENT DATE: 2016
